FAERS Safety Report 23390319 (Version 1)
Quarter: 2024Q1

REPORT INFORMATION
  Report Type: Spontaneous
  Country: DE (occurrence: GR)
  Receive Date: 20240111
  Receipt Date: 20240111
  Transmission Date: 20240410
  Serious: Yes (Other)
  Sender: FDA-Public Use
  Company Number: DE-SUN PHARMACEUTICAL INDUSTRIES LTD-2023R1-426529

PATIENT
  Age: 21 Year
  Sex: Female

DRUGS (1)
  1. OCTREOTIDE [Suspect]
     Active Substance: OCTREOTIDE\OCTREOTIDE ACETATE
     Indication: Hyperadrenocorticism
     Route: 065

REACTIONS (3)
  - Hyperparathyroidism [Unknown]
  - Therapy non-responder [Unknown]
  - Blood corticotrophin increased [Unknown]
